FAERS Safety Report 10451543 (Version 1)
Quarter: 2014Q3

REPORT INFORMATION
  Report Type: Spontaneous
  Country: CA (occurrence: CA)
  Receive Date: 20140913
  Receipt Date: 20140913
  Transmission Date: 20150326
  Serious: Yes (Hospitalization)
  Sender: FDA-Public Use
  Company Number: CA-009507513-1409CAN005183

PATIENT
  Age: 65 Year
  Sex: Female

DRUGS (2)
  1. EMEND [Suspect]
     Active Substance: APREPITANT
     Indication: NEOPLASM MALIGNANT
     Dosage: 80 MG DAY 2 AND 3, DAILY
     Route: 048
  2. EMEND [Suspect]
     Active Substance: APREPITANT
     Indication: NEOPLASM MALIGNANT
     Dosage: 125 MG DAY 1, DAILY
     Route: 048

REACTIONS (2)
  - Infection [Unknown]
  - Pyrexia [Unknown]

NARRATIVE: CASE EVENT DATE: 20140825
